FAERS Safety Report 9100768 (Version 2)
Quarter: 2013Q2

REPORT INFORMATION
  Report Type: Spontaneous
  Country: IT (occurrence: IT)
  Receive Date: 20130215
  Receipt Date: 20130411
  Transmission Date: 20140414
  Serious: Yes (Other)
  Sender: FDA-Public Use
  Company Number: IT-PFIZER INC-2013058469

PATIENT
  Age: 3 Year
  Sex: Male
  Weight: 15 kg

DRUGS (2)
  1. ZITROMAX [Suspect]
     Indication: OTITIS MEDIA
     Dosage: 150 MG, 1X/DAY
     Route: 048
     Dates: start: 20130209, end: 20130211
  2. BENTELAN [Suspect]
     Indication: OTITIS MEDIA
     Dosage: 1 G, 1X/DAY
     Route: 048
     Dates: start: 20130210, end: 20130211

REACTIONS (1)
  - Hypothermia [Recovered/Resolved]
